FAERS Safety Report 7522155-2 (Version None)
Quarter: 2011Q2

REPORT INFORMATION
  Report Type: 
  Country: None (occurrence: None)
  Receive Date: 20110603
  Receipt Date: 20110525
  Transmission Date: 20111010
  Serious: Yes (Hospitalization)
  Sender: FDA-Public Use
  Company Number: AU-SANOFI-AVENTIS-2011SA032637

PATIENT
  Age: 70 Year
  Sex: Male
  Weight: 69 kg

DRUGS (17)
  1. VOLTAREN [Concomitant]
     Indication: BONE PAIN
     Route: 048
     Dates: start: 20100630
  2. DOCETAXEL [Suspect]
     Indication: PROSTATE CANCER
     Route: 041
     Dates: start: 20101122, end: 20101122
  3. BLINDED THERAPY [Suspect]
     Indication: PROSTATE CANCER
     Route: 048
     Dates: start: 20101122
  4. ZOMETA [Concomitant]
     Indication: BONE PAIN
     Dosage: 4 IN 1 WK
     Route: 042
     Dates: start: 20100809
  5. DOCETAXEL [Suspect]
     Route: 041
     Dates: start: 20110111, end: 20110111
  6. PREDNISONE [Suspect]
     Indication: PROSTATE CANCER
     Dates: start: 20101122
  7. COLOXYL WITH SENNA [Concomitant]
     Indication: CONSTIPATION
     Route: 048
     Dates: start: 20100601
  8. PREDNISONE [Suspect]
     Dates: start: 20110111
  9. ACETAMINOPHEN [Concomitant]
     Indication: BONE PAIN
     Route: 048
     Dates: start: 20100801
  10. KAPANOL [Concomitant]
     Indication: BONE PAIN
     Route: 048
     Dates: start: 20100801
  11. OXYCONTIN [Concomitant]
     Indication: BONE PAIN
     Route: 048
     Dates: start: 20100624
  12. ZOLADEX [Concomitant]
     Indication: PROSTATE CANCER
     Dosage: EVERY 3 MONTHS
     Route: 030
     Dates: start: 20080701
  13. BLINDED THERAPY [Suspect]
     Route: 048
     Dates: start: 20110111
  14. DEXAMETHASONE [Concomitant]
     Indication: PREMEDICATION
     Route: 048
     Dates: start: 20101121
  15. ESOMEPRAZOLE MAGNESIUM [Concomitant]
     Route: 048
     Dates: start: 20090101
  16. CALCIUM/VITAMIN D [Concomitant]
     Indication: PROPHYLAXIS
     Route: 048
     Dates: start: 20100801
  17. ORDINE [Concomitant]
     Indication: BONE PAIN
     Route: 048
     Dates: start: 20100801

REACTIONS (1)
  - HYPOCALCAEMIA [None]
